FAERS Safety Report 6058016-8 (Version None)
Quarter: 2009Q1

REPORT INFORMATION
  Report Type: 
  Country: None (occurrence: None)
  Receive Date: 20090127
  Receipt Date: 20090114
  Transmission Date: 20090719
  Serious: Yes (Hospitalization, Other)
  Sender: FDA-Public Use
  Company Number: DSU-2008-02279

PATIENT
  Age: 63 Year
  Sex: Female
  Weight: 52.1637 kg

DRUGS (7)
  1. BENICAR [Suspect]
     Indication: HYPERTENSION
     Dosage: 40 MG (40 MG, QD) PER ORAL
     Route: 048
     Dates: start: 20060101, end: 20080701
  2. BENICAR [Suspect]
     Indication: HYPERTENSION
     Dosage: 40 MG (40 MG, QD) PER ORAL
     Route: 048
     Dates: start: 20080101
  3. SYNTHROID [Concomitant]
  4. PROTONIX (PANTOPRAZOLE) (40 MILLIGRAM) (PANTOPRAZOLE) [Concomitant]
  5. XANAX [Concomitant]
  6. AMBIEN CR (ZOLPIDEM TARTRATE) (12.5 MILLIGRAM) (ZOLPIDEM TARTRATE) [Concomitant]
  7. HYDROCODONE/ACETAMINOPHEN (PARACETAMOL, HYDROCODONE BITARTRATE) (PARAC [Concomitant]

REACTIONS (16)
  - BACK PAIN [None]
  - BLISTER [None]
  - BLOOD CALCIUM DECREASED [None]
  - BLOOD SODIUM DECREASED [None]
  - COELIAC DISEASE [None]
  - DIARRHOEA [None]
  - FALL [None]
  - GASTRIC HAEMORRHAGE [None]
  - HYPERTHYROIDISM [None]
  - HYPOTHYROIDISM [None]
  - LOSS OF CONSCIOUSNESS [None]
  - OESOPHAGEAL HAEMORRHAGE [None]
  - PRURITUS [None]
  - SPINAL COLUMN STENOSIS [None]
  - VOMITING [None]
  - WEIGHT DECREASED [None]
